FAERS Safety Report 13044801 (Version 1)
Quarter: 2016Q4

REPORT INFORMATION
  Report Type: Spontaneous
  Country: US (occurrence: US)
  Receive Date: 20161220
  Receipt Date: 20161220
  Transmission Date: 20170207
  Serious: Yes (Other)
  Sender: FDA-Public Use
  Company Number: US-ROCHE-1044937

PATIENT
  Age: 57 Year
  Sex: Male
  Weight: 83.54 kg

DRUGS (2)
  1. ZELBORAF [Suspect]
     Active Substance: VEMURAFENIB
     Route: 048
     Dates: start: 201202
  2. ZELBORAF [Suspect]
     Active Substance: VEMURAFENIB
     Indication: METASTATIC MALIGNANT MELANOMA
     Route: 048
     Dates: start: 201202

REACTIONS (10)
  - Squamous cell carcinoma [Unknown]
  - Sunburn [Recovered/Resolved]
  - Decreased appetite [Unknown]
  - Alopecia [Unknown]
  - Dysgeusia [Unknown]
  - Myalgia [Unknown]
  - Fatigue [Unknown]
  - Weight decreased [Recovered/Resolved]
  - Peripheral swelling [Not Recovered/Not Resolved]
  - Mass [Unknown]

NARRATIVE: CASE EVENT DATE: 201204
